FAERS Safety Report 12655074 (Version 1)
Quarter: 2016Q3

REPORT INFORMATION
  Report Type: Spontaneous
  Country: US (occurrence: US)
  Receive Date: 20160816
  Receipt Date: 20160816
  Transmission Date: 20161109
  Serious: Yes (Other)
  Sender: FDA-Public Use
  Company Number: US-PFIZER INC-2016386635

PATIENT
  Sex: Female

DRUGS (7)
  1. ANASTROZOLE. [Suspect]
     Active Substance: ANASTROZOLE
     Indication: BREAST CANCER METASTATIC
     Route: 048
  2. FASLODEX [Concomitant]
     Active Substance: FULVESTRANT
     Route: 030
  3. TAMOXIFEN [Suspect]
     Active Substance: TAMOXIFEN
     Route: 048
  4. TAXOTERE [Concomitant]
     Active Substance: DOCETAXEL
  5. ATENOLOL. [Suspect]
     Active Substance: ATENOLOL
     Route: 065
  6. IBRANCE [Concomitant]
     Active Substance: PALBOCICLIB
     Route: 048
  7. AFINITOR [Concomitant]
     Active Substance: EVEROLIMUS

REACTIONS (1)
  - Breast cancer [Unknown]
